FAERS Safety Report 6232515-8 (Version None)
Quarter: 2009Q2

REPORT INFORMATION
  Report Type: 
  Country: None (occurrence: None)
  Receive Date: 20090617
  Receipt Date: 20070809
  Transmission Date: 20091009
  Serious: Yes (Other)
  Sender: FDA-Public Use
  Company Number: US-ASTRAZENECA-2007UW09682

PATIENT
  Age: 531 Month
  Sex: Female
  Weight: 99.8 kg

DRUGS (9)
  1. SEROQUEL [Suspect]
     Indication: BIPOLAR DISORDER
     Route: 048
     Dates: start: 20020101
  2. SEROQUEL [Suspect]
     Indication: DEPRESSION
     Route: 048
     Dates: start: 20020101
  3. SEROQUEL [Suspect]
     Dosage: 100 MG 6 TAB QHS, 600 MG DAILY, 100 MG QHS, 100 MG BID
     Route: 048
     Dates: start: 20031223
  4. SEROQUEL [Suspect]
     Dosage: 100 MG 6 TAB QHS, 600 MG DAILY, 100 MG QHS, 100 MG BID
     Route: 048
     Dates: start: 20031223
  5. ZYPREXA [Concomitant]
     Dates: start: 20030201, end: 20030201
  6. COUMADIN [Concomitant]
     Route: 048
     Dates: start: 20060328
  7. METFORMIN HCL [Concomitant]
     Route: 048
     Dates: start: 20040713
  8. SOMA [Concomitant]
     Route: 065
     Dates: start: 20070123
  9. CELEBREX [Concomitant]
     Dosage: 200 MG ONCE DAILY, 100 MG QD
     Route: 048
     Dates: start: 20041109

REACTIONS (2)
  - PANCREATITIS ACUTE [None]
  - TYPE 2 DIABETES MELLITUS [None]
